FAERS Safety Report 23603758 (Version 1)
Quarter: 2024Q1

REPORT INFORMATION
  Report Type: Spontaneous
  Country: DE (occurrence: DE)
  Receive Date: 20240307
  Receipt Date: 20240307
  Transmission Date: 20240409
  Serious: Yes (Hospitalization, Other)
  Sender: FDA-Public Use
  Company Number: DE-009507513-2108DEU007689

PATIENT
  Age: 77 Year
  Sex: Male
  Weight: 72 kg

DRUGS (3)
  1. PEMETREXED [Suspect]
     Active Substance: PEMETREXED
     Indication: Non-small cell lung cancer
     Dosage: 930 MILLIGRAM
     Route: 065
     Dates: start: 20201014
  2. PEMBROLIZUMAB [Suspect]
     Active Substance: PEMBROLIZUMAB
     Indication: Non-small cell lung cancer
     Dosage: 200 MILLIGRAM
     Route: 065
     Dates: start: 20200916, end: 20210115
  3. CARBOPLATIN [Suspect]
     Active Substance: CARBOPLATIN
     Indication: Non-small cell lung cancer
     Dosage: 490 MILLIGRAM
     Route: 065
     Dates: start: 20201014

REACTIONS (1)
  - Immune-mediated enterocolitis [Unknown]

NARRATIVE: CASE EVENT DATE: 20210301
